FAERS Safety Report 4490221-4 (Version None)
Quarter: 2004Q4

REPORT INFORMATION
  Report Type: 
  Country: None (occurrence: None)
  Receive Date: 20041027
  Receipt Date: 20041015
  Transmission Date: 20050328
  Serious: Yes (Hospitalization, Other)
  Sender: FDA-Public Use
  Company Number: SUSI-2004-00682

PATIENT
  Age: 77 Year
  Sex: Male

DRUGS (2)
  1. PENTASA [Suspect]
     Indication: COLITIS ULCERATIVE
     Dosage: 750 MG, 3X/DAY:  TID, ORAL
     Route: 048
     Dates: start: 20040910, end: 20040901
  2. LOXOPROFEN (LOXOPROFEN) [Concomitant]

REACTIONS (1)
  - INTERSTITIAL LUNG DISEASE [None]
